FAERS Safety Report 4592949-4 (Version None)
Quarter: 2005Q1

REPORT INFORMATION
  Report Type: 
  Country: None (occurrence: None)
  Receive Date: 20050228
  Receipt Date: 20050223
  Transmission Date: 20050727
  Serious: Yes (Hospitalization, Disabling)
  Sender: FDA-Public Use
  Company Number: FR-GLAXOSMITHKLINE-B0372937A

PATIENT
  Age: 23 Year
  Sex: Female

DRUGS (3)
  1. IMIGRANE [Suspect]
     Indication: MIGRAINE
     Route: 045
     Dates: start: 20050208, end: 20050208
  2. NARAMIG [Suspect]
     Indication: MIGRAINE
     Dosage: 2.5MG SEE DOSAGE TEXT
     Route: 048
     Dates: start: 20050101, end: 20050207
  3. KETOPROFEN [Concomitant]
     Indication: MIGRAINE
     Dates: start: 20050101

REACTIONS (11)
  - ABNORMAL BEHAVIOUR [None]
  - APHASIA [None]
  - CEREBRAL HAEMATOMA [None]
  - CEREBROVASCULAR SPASM [None]
  - CONDITION AGGRAVATED [None]
  - DEPRESSED LEVEL OF CONSCIOUSNESS [None]
  - HEADACHE [None]
  - MIGRAINE [None]
  - NERVOUS SYSTEM DISORDER [None]
  - SCREAMING [None]
  - VOMITING [None]
